FAERS Safety Report 4815103-7 (Version None)
Quarter: 2005Q4

REPORT INFORMATION
  Report Type: 
  Country: None (occurrence: None)
  Receive Date: 20051027
  Receipt Date: 20051014
  Transmission Date: 20060501
  Serious: Yes (Other)
  Sender: FDA-Public Use
  Company Number: 2005140811

PATIENT
  Age: 51 Year
  Sex: Female

DRUGS (1)
  1. BEXTRA [Suspect]
     Indication: ROAD TRAFFIC ACCIDENT
     Dosage: (10 MG)
     Dates: start: 20020604

REACTIONS (12)
  - BLOOD GLUCOSE INCREASED [None]
  - BUNDLE BRANCH BLOCK LEFT [None]
  - CARDIAC DISORDER [None]
  - CARPAL TUNNEL SYNDROME [None]
  - FEAR [None]
  - HAEMATOCHEZIA [None]
  - HEART RATE INCREASED [None]
  - HYPERCHOLESTEROLAEMIA [None]
  - HYPERTENSION [None]
  - MYOCARDIAL ISCHAEMIA [None]
  - PALPITATIONS [None]
  - VENTRICULAR HYPERTROPHY [None]
